FAERS Safety Report 9261684 (Version 2)
Quarter: 2013Q2

REPORT INFORMATION
  Report Type: Spontaneous
  Country: US (occurrence: US)
  Receive Date: 20130429
  Receipt Date: 20130618
  Transmission Date: 20140414
  Serious: Yes (Hospitalization, Other)
  Sender: FDA-Public Use
  Company Number: US-TEVA-400206USA

PATIENT
  Age: 39 Year
  Sex: Female

DRUGS (9)
  1. ACETAMINOPHEN/CODEINE PO4 [Suspect]
     Indication: PAIN
     Dates: start: 2004, end: 20130420
  2. VENTOL [Concomitant]
  3. CYMBALTA [Concomitant]
  4. ZYPREXA [Concomitant]
  5. KLONOPIN [Concomitant]
  6. ADVAIR [Concomitant]
  7. ZANAFLEX [Concomitant]
  8. POTASSIUM [Concomitant]
  9. ZYVOX [Concomitant]

REACTIONS (6)
  - Oedema [Recovering/Resolving]
  - Erythema [Recovering/Resolving]
  - Dysuria [Recovered/Resolved]
  - Renal failure [Unknown]
  - Incontinence [Unknown]
  - Bladder dilatation [Unknown]
